FAERS Safety Report 8363112-6 (Version None)
Quarter: 2012Q1

REPORT INFORMATION
  Report Type: 
  Country: None (occurrence: None)
  Receive Date: 20120323
  Receipt Date: 20111012
  Transmission Date: 20120608
  Serious: Yes (Disabling, Other)
  Sender: FDA-Public Use
  Company Number: 163-21880-11052102

PATIENT
  Age: 66 Year
  Sex: Male

DRUGS (5)
  1. REVLIMID [Suspect]
  2. REVLIMID [Suspect]
     Indication: LYMPHOCYTIC LEUKAEMIA
     Dosage: 10 MG, QD X 21 D, PO, 10 MG, QD X 21 D, PO, 10 MG, QD X 14 DAYS ON, 7 DAYS OFF, PO
     Route: 048
     Dates: start: 20110413, end: 20110428
  3. REVLIMID [Suspect]
     Indication: LYMPHOCYTIC LEUKAEMIA
     Dosage: 10 MG, QD X 21 D, PO, 10 MG, QD X 21 D, PO, 10 MG, QD X 14 DAYS ON, 7 DAYS OFF, PO
     Route: 048
     Dates: start: 20110629
  4. REVLIMID [Suspect]
     Indication: LYMPHOCYTIC LEUKAEMIA
     Dosage: 10 MG, QD X 21 D, PO, 10 MG, QD X 21 D, PO, 10 MG, QD X 14 DAYS ON, 7 DAYS OFF, PO
     Route: 048
     Dates: start: 20110510, end: 20110622
  5. DEXAMETHASONE [Suspect]
     Indication: PRODUCT USED FOR UNKNOWN INDICATION

REACTIONS (6)
  - WHITE BLOOD CELL COUNT INCREASED [None]
  - NAUSEA [None]
  - CHRONIC LYMPHOCYTIC LEUKAEMIA [None]
  - THROMBOCYTOPENIA [None]
  - DISEASE PROGRESSION [None]
  - NEUTROPENIA [None]
